FAERS Safety Report 20693786 (Version 2)
Quarter: 2022Q3

REPORT INFORMATION
  Report Type: Report from Study
  Country: US (occurrence: US)
  Receive Date: 20220411
  Receipt Date: 20220712
  Transmission Date: 20221027
  Serious: Yes (Death, Other)
  Sender: FDA-Public Use
  Company Number: US-ABBVIE-22K-163-4351429-00

PATIENT
  Sex: Female

DRUGS (1)
  1. IMBRUVICA [Suspect]
     Active Substance: IBRUTINIB
     Indication: Non-Hodgkin^s lymphoma
     Route: 048
     Dates: start: 201907

REACTIONS (4)
  - Acute respiratory failure [Fatal]
  - Subdural haematoma [Fatal]
  - Non-Hodgkin^s lymphoma [Fatal]
  - Hip fracture [Recovered/Resolved]
